FAERS Safety Report 16647092 (Version 2)
Quarter: 2019Q3

REPORT INFORMATION
  Report Type: Report from Study
  Country: IT (occurrence: IT)
  Receive Date: 20190730
  Receipt Date: 20190903
  Transmission Date: 20191004
  Serious: Yes (Hospitalization)
  Sender: FDA-Public Use
  Company Number: IT-PFIZER INC-2019320907

PATIENT
  Age: 57 Year
  Sex: Male

DRUGS (3)
  1. DELTACORTENE [Suspect]
     Active Substance: PREDNISONE
     Indication: DRUG ABUSE
     Dosage: 45 MG, TOTAL
     Route: 048
     Dates: start: 20190512, end: 20190512
  2. ALMARYTM [Suspect]
     Active Substance: FLECAINIDE ACETATE
     Indication: DRUG ABUSE
     Dosage: 1 G, TOTAL
     Route: 048
     Dates: start: 20190512, end: 20190512
  3. AMLODIPINE BESILATE [Suspect]
     Active Substance: AMLODIPINE BESYLATE
     Indication: DRUG ABUSE
     Dosage: 50 MG, TOTAL
     Route: 048
     Dates: start: 20190512, end: 20190512

REACTIONS (3)
  - Drug abuse [Recovering/Resolving]
  - Vomiting [Recovering/Resolving]
  - Sopor [Recovering/Resolving]

NARRATIVE: CASE EVENT DATE: 20190512
